FAERS Safety Report 8065982-8 (Version None)
Quarter: 2012Q1

REPORT INFORMATION
  Report Type: 
  Country: None (occurrence: None)
  Receive Date: 20120124
  Receipt Date: 20120119
  Transmission Date: 20120608
  Serious: Yes (Hospitalization)
  Sender: FDA-Public Use
  Company Number: US-GILEAD-2011-0045302

PATIENT
  Sex: Female

DRUGS (7)
  1. COUMADIN [Concomitant]
  2. FUROSEMIDE [Concomitant]
  3. ADCIRCA [Concomitant]
  4. PROAIR HFA [Concomitant]
  5. PANTOPRAZOLE [Concomitant]
  6. LETAIRIS [Suspect]
     Indication: PULMONARY HYPERTENSION
     Dosage: 10 MG, UNK
     Route: 048
     Dates: start: 20110729
  7. LETAIRIS [Suspect]
     Indication: SCLERODERMA

REACTIONS (2)
  - ATRIAL FIBRILLATION [None]
  - DYSPNOEA [None]
